FAERS Safety Report 4996682-6 (Version None)
Quarter: 2006Q2

REPORT INFORMATION
  Report Type: 
  Country: None (occurrence: None)
  Receive Date: 20060508
  Receipt Date: 20060508
  Transmission Date: 20061013
  Serious: Yes (Hospitalization)
  Sender: FDA-Public Use
  Company Number: None

PATIENT
  Age: 39 Year
  Sex: Male

DRUGS (1)
  1. CEFAZOLIN [Suspect]
     Indication: PROPHYLAXIS
     Dosage: 2 GM Q3H X 3 DOSES IV
     Route: 042
     Dates: start: 20060306, end: 20060306

REACTIONS (2)
  - ENCEPHALOPATHY [None]
  - PANCYTOPENIA [None]
